FAERS Safety Report 8044475-8 (Version None)
Quarter: 2012Q1

REPORT INFORMATION
  Report Type: 
  Country: None (occurrence: None)
  Receive Date: 20120113
  Receipt Date: 20120105
  Transmission Date: 20120608
  Serious: Yes (Other)
  Sender: FDA-Public Use
  Company Number: GB-JNJFOC-20120101779

PATIENT
  Age: 49 Year
  Sex: Male
  Weight: 109 kg

DRUGS (1)
  1. INFLIXIMAB, RECOMBINANT [Suspect]
     Indication: BEHCET'S SYNDROME
     Route: 042
     Dates: start: 20041015, end: 20060508

REACTIONS (1)
  - COLON CANCER METASTATIC [None]
